FAERS Safety Report 6773972-8 (Version None)
Quarter: 2010Q2

REPORT INFORMATION
  Report Type: 
  Country: None (occurrence: None)
  Receive Date: 20100615
  Receipt Date: 20100615
  Transmission Date: 20101027
  Serious: Yes (Hospitalization)
  Sender: FDA-Public Use
  Company Number: None

PATIENT
  Sex: Male
  Weight: 76 kg

DRUGS (6)
  1. OFATUMUMAB 1000 MG GLAXO SMITH KLEIN [Suspect]
     Indication: CHRONIC LYMPHOCYTIC LEUKAEMIA
     Dosage: 1000MG Q28 DAYS IV DRIP
     Route: 041
     Dates: start: 20100525, end: 20100525
  2. BENDAMUSTINE 70MG/M2 CEPHLAN [Suspect]
     Dosage: 135.8MG DAY 1,2 Q28 DAYS IV
     Route: 042
     Dates: start: 20100525, end: 20100526
  3. ALFUZOSIN HCL [Concomitant]
  4. VALTREX [Concomitant]
  5. MULTI-VITAMINS [Concomitant]
  6. ZITHROMAX [Concomitant]

REACTIONS (3)
  - HYPOTENSION [None]
  - PYREXIA [None]
  - RENAL FAILURE [None]
